FAERS Safety Report 9669687 (Version 1)
Quarter: 2013Q4

REPORT INFORMATION
  Report Type: Spontaneous
  Country: US (occurrence: None)
  Receive Date: 20131104
  Receipt Date: 20131104
  Transmission Date: 20140711
  Serious: No
  Sender: FDA-Public Use
  Company Number: None

PATIENT
  Age: 43 Year
  Sex: Female

DRUGS (1)
  1. TUSSIN [Suspect]
     Route: 048

REACTIONS (20)
  - Chemical injury [None]
  - Throat irritation [None]
  - Oropharyngeal pain [None]
  - Swelling face [None]
  - Local swelling [None]
  - Calcinosis [None]
  - Ear pain [None]
  - Muscle spasms [None]
  - Nausea [None]
  - Product quality issue [None]
  - Product taste abnormal [None]
  - Product odour abnormal [None]
  - Incontinence [None]
  - Renal pain [None]
  - Dyspnoea [None]
  - Vision blurred [None]
  - Hypoaesthesia [None]
  - Cough [None]
  - Choking [None]
  - Product tampering [None]
